FAERS Safety Report 8836952 (Version 1)
Quarter: 2012Q4

REPORT INFORMATION
  Report Type: Spontaneous
  Country: US (occurrence: None)
  Receive Date: 20121011
  Receipt Date: 20121011
  Transmission Date: 20130627
  Serious: Yes (Life-Threatening)
  Sender: FDA-Public Use
  Company Number: None

PATIENT
  Age: 54 Year
  Weight: 72.58 kg

DRUGS (1)
  1. VIIBRYD [Suspect]
     Dosage: 10-MG OF DAY 7 20 MG ch___ day 15 - 40 mg 20-21 - D/C
     Dates: start: 20120919, end: 20120920

REACTIONS (3)
  - Drug prescribing error [None]
  - Violence-related symptom [None]
  - Impulse-control disorder [None]
